FAERS Safety Report 16470864 (Version 1)
Quarter: 2019Q2

REPORT INFORMATION
  Report Type: Spontaneous
  Country: US (occurrence: US)
  Receive Date: 20190624
  Receipt Date: 20190624
  Transmission Date: 20190711
  Serious: Yes (Death, Life-Threatening, Hospitalization, Other)
  Sender: FDA-Public Use
  Company Number: US-PURDUE-GBR-2019-0067391

PATIENT
  Age: 57 Year
  Sex: Female

DRUGS (10)
  1. NON-PMN HYDROMORPHONE HCL [Suspect]
     Active Substance: HYDROMORPHONE HYDROCHLORIDE
     Indication: CANCER PAIN
     Dosage: 1.4 MG, DAILY (STRENGTH 2MG/ML)
     Route: 051
  2. NON-PMN HYDROMORPHONE HCL [Suspect]
     Active Substance: HYDROMORPHONE HYDROCHLORIDE
     Dosage: 0.1 MG, Q6H (STRENGTH 2 MG/ML) PTM BOLUS
     Route: 051
  3. MORPHINE SULFATE. [Suspect]
     Active Substance: MORPHINE SULFATE
     Indication: CANCER PAIN
     Dosage: 120 MG, Q8H
     Route: 048
  4. NON-PMN HYDROMORPHONE HCL [Suspect]
     Active Substance: HYDROMORPHONE HYDROCHLORIDE
     Dosage: 0.15 MG, Q6H (STRENGTH 2MG/ML) PTM BOLUS
     Route: 051
  5. FENTANYL. [Suspect]
     Active Substance: FENTANYL
     Indication: CANCER PAIN
     Dosage: 3000 MCG, DAILY
     Route: 051
  6. BUPIVACAINE. [Suspect]
     Active Substance: BUPIVACAINE
     Indication: CANCER PAIN
     Dosage: 2.5 MG, DAILY (STRENGTH 10 MG/ML)
     Route: 051
  7. MORPHINE SULFATE. [Suspect]
     Active Substance: MORPHINE SULFATE
     Indication: CANCER PAIN
     Dosage: 30-45MG Q3H PRN
     Route: 048
  8. NON-PMN HYDROMORPHONE HCL [Suspect]
     Active Substance: HYDROMORPHONE HYDROCHLORIDE
     Dosage: 0.8 MG, DAILY (STRENGTH 2MG/ML)
     Route: 051
  9. NON-PMN HYDROMORPHONE HCL [Suspect]
     Active Substance: HYDROMORPHONE HYDROCHLORIDE
     Dosage: 0.5 MG, DAILY (STRENGTH 2MG/ML)
     Route: 051
  10. HYDROMORPHONE HYDROCHLORIDE. [Suspect]
     Active Substance: HYDROMORPHONE HYDROCHLORIDE
     Indication: BREAKTHROUGH PAIN
     Dosage: 2 MG, Q3H PRN
     Route: 048

REACTIONS (11)
  - Neurotoxicity [Recovering/Resolving]
  - Delirium [Recovering/Resolving]
  - Toxic encephalopathy [Recovering/Resolving]
  - Discomfort [Unknown]
  - Dehydration [Unknown]
  - Restlessness [Unknown]
  - Myoclonus [Unknown]
  - Sleep disorder [Unknown]
  - Constipation [Unknown]
  - Serous cystadenocarcinoma ovary [Fatal]
  - Cancer pain [Unknown]
